FAERS Safety Report 22678011 (Version 3)
Quarter: 2023Q4

REPORT INFORMATION
  Report Type: Spontaneous
  Country: US (occurrence: US)
  Receive Date: 20230706
  Receipt Date: 20231005
  Transmission Date: 20240110
  Serious: No
  Sender: FDA-Public Use
  Company Number: US-SA-SAC20230704001404

PATIENT
  Age: 77 Year
  Sex: Female

DRUGS (2)
  1. DUPIXENT [Suspect]
     Active Substance: DUPILUMAB
     Indication: Asthma
     Dosage: 600 MG, 1X
     Route: 058
     Dates: start: 20230701, end: 20230701
  2. DUPIXENT [Suspect]
     Active Substance: DUPILUMAB
     Dosage: 300 MG, QOW
     Route: 058
     Dates: start: 2023, end: 2023

REACTIONS (4)
  - Illness [Unknown]
  - Headache [Unknown]
  - Accidental exposure to product [Unknown]
  - Product storage error [Unknown]

NARRATIVE: CASE EVENT DATE: 20230101
